FAERS Safety Report 23170961 (Version 4)
Quarter: 2024Q1

REPORT INFORMATION
  Report Type: Spontaneous
  Country: CN (occurrence: CN)
  Receive Date: 20231110
  Receipt Date: 20240202
  Transmission Date: 20240409
  Serious: Yes (Life-Threatening)
  Sender: FDA-Public Use
  Company Number: CN-002147023-NVSC2023CN239616

PATIENT
  Age: 40 Year
  Sex: Female
  Weight: 37.5 kg

DRUGS (3)
  1. MYCOPHENOLATE SODIUM [Suspect]
     Active Substance: MYCOPHENOLATE SODIUM
     Indication: Prophylaxis against transplant rejection
     Dosage: 180 MG, BID
     Route: 048
     Dates: start: 20231027, end: 20231027
  2. MYCOPHENOLATE SODIUM [Suspect]
     Active Substance: MYCOPHENOLATE SODIUM
     Dosage: 720 MG, BID (720MG ONCE, ANOTHER 720MG AS A SUPPLEMENT WAS GIVEN AFTER VOMITING (ENTERIC-COATED TABL
     Route: 048
     Dates: start: 20231027, end: 20231027
  3. INSULIN HUMAN [Concomitant]
     Active Substance: INSULIN HUMAN
     Indication: Diabetes mellitus
     Dosage: 1 DOSAGE FORM, QD (400.000 U)
     Route: 058
     Dates: start: 20231027, end: 20231027

REACTIONS (13)
  - Anaphylactic shock [Recovered/Resolved]
  - Cold sweat [Unknown]
  - Discomfort [Not Recovered/Not Resolved]
  - Heart rate decreased [Recovered/Resolved]
  - Loss of consciousness [Unknown]
  - Chills [Not Recovered/Not Resolved]
  - Confusional state [Not Recovered/Not Resolved]
  - Restlessness [Not Recovered/Not Resolved]
  - Nausea [Unknown]
  - Vomiting [Unknown]
  - Dyspnoea [Unknown]
  - Blood pressure decreased [Recovered/Resolved]
  - Blood potassium increased [Unknown]

NARRATIVE: CASE EVENT DATE: 20231027
